FAERS Safety Report 6133631-1 (Version None)
Quarter: 2009Q1

REPORT INFORMATION
  Report Type: 
  Country: None (occurrence: None)
  Receive Date: 20090326
  Receipt Date: 20090323
  Transmission Date: 20090719
  Serious: Yes (Hospitalization)
  Sender: FDA-Public Use
  Company Number: US-JNJFOC-20090306012

PATIENT
  Age: 26 Year
  Sex: Male

DRUGS (5)
  1. PREZISTA [Suspect]
     Indication: HIV INFECTION
     Route: 048
  2. RITONAVIR [Concomitant]
     Indication: HIV INFECTION
  3. EPZICOM [Concomitant]
     Indication: HIV INFECTION
  4. PROTONIX [Concomitant]
     Indication: GASTRITIS
  5. PROTONIX [Concomitant]
     Indication: GASTROINTESTINAL ULCER

REACTIONS (4)
  - GASTRITIS [None]
  - GASTROINTESTINAL DISORDER [None]
  - GASTROINTESTINAL HAEMORRHAGE [None]
  - GASTROINTESTINAL ULCER [None]
